FAERS Safety Report 22345557 (Version 1)
Quarter: 2023Q2

REPORT INFORMATION
  Report Type: Spontaneous
  Country: US (occurrence: None)
  Receive Date: 20230518
  Receipt Date: 20230518
  Transmission Date: 20230721
  Serious: No
  Sender: FDA-Public Use
  Company Number: None

PATIENT
  Sex: Female

DRUGS (1)
  1. SKYRIZI [Suspect]
     Active Substance: RISANKIZUMAB-RZAA
     Indication: Psoriatic arthropathy
     Dosage: OTHER FREQUENCY : EVERY12QWKS;?
     Route: 058
     Dates: start: 202209

REACTIONS (6)
  - Psoriasis [None]
  - Pruritus [None]
  - Skin burning sensation [None]
  - Arthralgia [None]
  - Rash erythematous [None]
  - Drug ineffective [None]
